FAERS Safety Report 6042686-4 (Version None)
Quarter: 2009Q1

REPORT INFORMATION
  Report Type: 
  Country: None (occurrence: None)
  Receive Date: 20090119
  Receipt Date: 20090113
  Transmission Date: 20090719
  Serious: Yes (Hospitalization, Other)
  Sender: FDA-Public Use
  Company Number: PHHY2008JP22625

PATIENT
  Sex: Male
  Weight: 52.65 kg

DRUGS (4)
  1. TEGRETOL [Suspect]
     Indication: TRIGEMINAL NEURALGIA
     Dosage: 400MG PER DAY
     Route: 048
     Dates: start: 20080519, end: 20080529
  2. TRYPTANOL [Concomitant]
     Indication: TRIGEMINAL NEURALGIA
     Dosage: 25 MG, QD
     Route: 048
     Dates: start: 20080526, end: 20080529
  3. TRYPTANOL [Concomitant]
     Dosage: 10 MG, QD
     Route: 048
     Dates: start: 20080520
  4. CELECOX [Concomitant]
     Indication: TRIGEMINAL NEURALGIA
     Dosage: 200 MG, BID
     Route: 048
     Dates: start: 20080520, end: 20080531

REACTIONS (10)
  - ABDOMINAL PAIN [None]
  - APPETITE DISORDER [None]
  - DIARRHOEA [None]
  - DRUG ERUPTION [None]
  - DYSPHAGIA [None]
  - ERYTHEMA [None]
  - HEPATIC ENZYME INCREASED [None]
  - PAIN [None]
  - PYREXIA [None]
  - VOMITING [None]
